FAERS Safety Report 6622808-4 (Version None)
Quarter: 2010Q1

REPORT INFORMATION
  Report Type: 
  Country: None (occurrence: None)
  Receive Date: 20100310
  Receipt Date: 20100226
  Transmission Date: 20100710
  Serious: Yes (Hospitalization)
  Sender: FDA-Public Use
  Company Number: BE-JNJFOC-20091105588

PATIENT
  Age: 20 Year
  Sex: Female
  Weight: 53 kg

DRUGS (4)
  1. INVEGA [Suspect]
     Indication: DRUG USE FOR UNKNOWN INDICATION
     Route: 048
  2. TEMESTA [Concomitant]
  3. SEROQUEL [Concomitant]
     Indication: DRUG USE FOR UNKNOWN INDICATION
     Route: 048
  4. BENZODIAZEPINE DERIVATIVES [Concomitant]

REACTIONS (3)
  - APHASIA [None]
  - DYSPHAGIA [None]
  - EXTRAPYRAMIDAL DISORDER [None]
